FAERS Safety Report 4335786-8 (Version None)
Quarter: 2004Q2

REPORT INFORMATION
  Report Type: 
  Country: None (occurrence: None)
  Receive Date: 20040406
  Receipt Date: 20040303
  Transmission Date: 20050107
  Serious: Yes (Hospitalization)
  Sender: FDA-Public Use
  Company Number: 200401567

PATIENT
  Age: 77 Year
  Sex: Female

DRUGS (6)
  1. ZYMAR [Suspect]
     Indication: PROPHYLAXIS
     Dosage: 1 DROP Q4HR EYE
     Dates: start: 20040111, end: 20040111
  2. GLUCOPHAGE [Concomitant]
  3. HYZAAR [Concomitant]
  4. NEXIUM [Concomitant]
  5. COREG [Concomitant]
  6. ASPIRIN [Concomitant]

REACTIONS (2)
  - FEELING ABNORMAL [None]
  - LOSS OF CONSCIOUSNESS [None]
